FAERS Safety Report 5420602-3 (Version None)
Quarter: 2007Q3

REPORT INFORMATION
  Report Type: 
  Country: None (occurrence: None)
  Receive Date: 20070816
  Receipt Date: 20070801
  Transmission Date: 20080115
  Serious: Yes (Congenital Anomaly)
  Sender: FDA-Public Use
  Company Number: 6036471

PATIENT
  Sex: Male

DRUGS (2)
  1. METFORMIN HCL [Suspect]
     Indication: POLYCYSTIC OVARIES
     Dosage: 2000 MG (2000 MG, 1 D) TRANSPLACENTAL
     Route: 064
  2. CLOMIPHENE CITRATE [Suspect]
     Indication: POLYCYSTIC OVARIES
     Dosage: 50 MG (50 MG, 1 D) TRANSPLACENTAL
     Route: 064

REACTIONS (3)
  - ANAL ATRESIA [None]
  - CAESAREAN SECTION [None]
  - DRUG EXPOSURE DURING PREGNANCY [None]
